FAERS Safety Report 19859985 (Version 3)
Quarter: 2021Q4

REPORT INFORMATION
  Report Type: Spontaneous
  Country: US (occurrence: US)
  Receive Date: 20210920
  Receipt Date: 20211026
  Transmission Date: 20220303
  Serious: Yes (Life-Threatening, Hospitalization, Other)
  Sender: FDA-Public Use
  Company Number: US-TEVA-2021-US-1954026

PATIENT
  Age: 73 Year
  Sex: Female
  Weight: 49.89 kg

DRUGS (30)
  1. AJOVY [Suspect]
     Active Substance: FREMANEZUMAB-VFRM
     Indication: Migraine
     Dosage: 225MG/1.5ML
     Route: 065
     Dates: start: 20200922, end: 20210813
  2. AJOVY [Suspect]
     Active Substance: FREMANEZUMAB-VFRM
     Route: 065
  3. CLOPIDOGREL [Concomitant]
     Active Substance: CLOPIDOGREL BISULFATE
     Dosage: FOR 3 WEEKS
     Route: 048
  4. CLOPIDOGREL [Concomitant]
     Active Substance: CLOPIDOGREL BISULFATE
     Route: 048
  5. ASPIRIN [Concomitant]
     Active Substance: ASPIRIN
     Dosage: TAKE 1 TABLET BY MOUTH EVERY DAY
     Route: 048
     Dates: start: 20210902
  6. CRESTOR [Concomitant]
     Active Substance: ROSUVASTATIN CALCIUM
  7. CRESTOR [Concomitant]
     Active Substance: ROSUVASTATIN CALCIUM
  8. BUPROPION [Concomitant]
     Active Substance: BUPROPION
     Dosage: EXTENDED RELEASE 24 HOUR
     Route: 048
  9. ESCITALOPRAM [Concomitant]
     Active Substance: ESCITALOPRAM OXALATE
     Route: 048
  10. ESTAZOLAM [Concomitant]
     Active Substance: ESTAZOLAM
     Dosage: NIGHTLY
     Route: 048
  11. FLUTICASONE [Concomitant]
     Active Substance: FLUTICASONE
     Dosage: 50 MEG/ACT, 1 SPRAY BY EACH NARE ROUTE DAILY
     Route: 045
     Dates: start: 20130226
  12. LISINOPRIL [Concomitant]
     Active Substance: LISINOPRIL
     Route: 048
     Dates: start: 20210903
  13. ROSUVASTATIN [Concomitant]
     Active Substance: ROSUVASTATIN
     Indication: Lipids increased
     Dosage: NIGHTLY.
     Route: 048
  14. ROSUVASTATIN [Concomitant]
     Active Substance: ROSUVASTATIN
     Dosage: NIGHTLY.
     Route: 048
  15. HERBALS\TURMERIC [Concomitant]
     Active Substance: HERBALS\TURMERIC
     Route: 048
  16. AUGMENTIN [Concomitant]
     Active Substance: AMOXICILLIN\CLAVULANATE POTASSIUM
     Dosage: 875 MG-125 MG TABLET
     Route: 048
  17. VALACYCLOVIR HYDROCHLORIDE [Concomitant]
     Active Substance: VALACYCLOVIR HYDROCHLORIDE
     Dosage: TAKE 2 EVERY 12 HOURS X 3 ROUNDS
     Route: 048
  18. MELOXICAM [Concomitant]
     Active Substance: MELOXICAM
     Dosage: TAKE 1 TABLET BY MOUTH EVERY DAY AS NEEDED
     Route: 048
  19. Twinrix Preservative-Free [Concomitant]
     Dosage: 720 UNITS, PRESERVATIVE FREE SUSPENSION; 0.1 ML
  20. Twinrix Preservative-Free [Concomitant]
     Dosage: 720 UNITS, PRESERVATIVE FREE SUSPENSION; 1 ML
  21. Twinrix Preservative-Free [Concomitant]
     Dosage: 720 UNITS, PRESERVATIVE FREE SUSPENSION; 1.0
  22. SHINGRIX [Concomitant]
     Active Substance: RECOMBINANT VARICELLA ZOSTER VIRUS (VZV) GLYCOPROTEIN E
     Dosage: ADJUVANTED POWDER FOR INJECTION; 0.5 IM 0 REFILL(S);
  23. PENLAC [Concomitant]
     Active Substance: CICLOPIROX
     Dosage: SOLUTION; TOP AS DIRECTED
  24. TUBERSOL [Concomitant]
     Active Substance: TUBERCULIN PURIFIED PROTEIN DERIVATIVE
     Dosage: 5 TUBERCULIN UNITS/0.1 ML SOLUTION; 0.1CC IND
  25. LATISSE [Concomitant]
     Active Substance: BIMATOPROST
     Dosage: USE AS DIRECTED
  26. RIZATRIPTAN [Concomitant]
     Active Substance: RIZATRIPTAN
  27. WELLBUTRIN [Concomitant]
     Active Substance: BUPROPION HYDROCHLORIDE
  28. Bifidobacterium lnfantis [Concomitant]
     Route: 048
  29. MAGNESIUM OXIDE [Concomitant]
     Active Substance: MAGNESIUM OXIDE
  30. CYCLOSPORINE [Concomitant]
     Active Substance: CYCLOSPORINE
     Dosage: PLACE 1 DROP INTO BOTH EYES

REACTIONS (5)
  - Basal ganglia stroke [Recovering/Resolving]
  - Lacunar stroke [Recovering/Resolving]
  - Basal ganglia infarction [Recovering/Resolving]
  - Atrial septal defect [Recovering/Resolving]
  - Nervous system disorder [Recovering/Resolving]

NARRATIVE: CASE EVENT DATE: 20210813
